FAERS Safety Report 4646055-0 (Version None)
Quarter: 2005Q2

REPORT INFORMATION
  Report Type: 
  Country: None (occurrence: None)
  Receive Date: 20050425
  Receipt Date: 20050414
  Transmission Date: 20051028
  Serious: No
  Sender: FDA-Public Use
  Company Number: 2005UW05807

PATIENT
  Age: 48 Year
  Sex: Male

DRUGS (21)
  1. SEROQUEL [Suspect]
     Indication: DEPRESSION
     Dates: start: 20031229, end: 20040301
  2. ROBAXIN [Concomitant]
  3. SOMA [Concomitant]
  4. BACLOFEN [Concomitant]
  5. KADIAN [Concomitant]
  6. OXYCODONE HCL [Concomitant]
  7. SINEQUAN [Concomitant]
  8. XANAX [Concomitant]
  9. ARICEPT [Concomitant]
  10. REMERON [Concomitant]
  11. LEVITRA [Concomitant]
  12. NEURONTIN [Concomitant]
  13. PRILOSEC [Concomitant]
  14. LIPITOR [Concomitant]
  15. AMITRIPTYLINE HCL TAB [Concomitant]
  16. MIDRIN [Concomitant]
  17. ZANAFLEX [Concomitant]
  18. FLEXERIL [Concomitant]
  19. VALIUM [Concomitant]
  20. PROTONIX [Concomitant]
  21. ALPRAZOLAM [Concomitant]

REACTIONS (2)
  - GYNAECOMASTIA [None]
  - SEXUAL DYSFUNCTION [None]
